FAERS Safety Report 8565631-6 (Version None)
Quarter: 2012Q3

REPORT INFORMATION
  Report Type: 
  Country: None (occurrence: None)
  Receive Date: 20120803
  Receipt Date: 20120625
  Transmission Date: 20120928
  Serious: Yes (Hospitalization, Other)
  Sender: FDA-Public Use
  Company Number: IT-BRISTOL-MYERS SQUIBB COMPANY-15398449

PATIENT
  Age: 48 Year
  Sex: Male
  Weight: 92 kg

DRUGS (5)
  1. SOTALOL HCL [Concomitant]
     Dosage: 1DF = 0.5 TAB X3
  2. LANOXIN [Concomitant]
     Dosage: 1DF = .125
  3. RAMIPRIL [Concomitant]
  4. COUMADIN [Suspect]
     Indication: ANTICOAGULANT THERAPY
     Dosage: DURATION OF THERAPY:27 YRS VARIABLE DOSAGES
     Dates: start: 19830101
  5. LASITONE [Concomitant]
     Dosage: 1DF =1 TAB

REACTIONS (10)
  - CHEST PAIN [None]
  - INTERNATIONAL NORMALISED RATIO INCREASED [None]
  - ABDOMINAL PAIN [None]
  - OSTEOPOROSIS [None]
  - SPINAL OSTEOARTHRITIS [None]
  - RENAL COLIC [None]
  - OSTEOARTHRITIS [None]
  - OSTEOPOROTIC FRACTURE [None]
  - ARRHYTHMIA [None]
  - BENIGN PROSTATIC HYPERPLASIA [None]
